FAERS Safety Report 9699711 (Version 2)
Quarter: 2013Q4

REPORT INFORMATION
  Report Type: Spontaneous
  Country: US (occurrence: US)
  Receive Date: 20131120
  Receipt Date: 20131210
  Transmission Date: 20140711
  Serious: Yes (Other)
  Sender: FDA-Public Use
  Company Number: US-TEVA-373347USA

PATIENT
  Age: 20 Year
  Sex: Female

DRUGS (1)
  1. PARAGARD 380A [Suspect]
     Indication: CONTRACEPTION
     Route: 015
     Dates: start: 20120517, end: 20120729

REACTIONS (4)
  - Medical device complication [Unknown]
  - Anaemia [Unknown]
  - Headache [Unknown]
  - Menometrorrhagia [Unknown]
